FAERS Safety Report 21220597 (Version 1)
Quarter: 2022Q3

REPORT INFORMATION
  Report Type: Spontaneous
  Country: US (occurrence: US)
  Receive Date: 20220817
  Receipt Date: 20220817
  Transmission Date: 20221027
  Serious: Yes (Other)
  Sender: FDA-Public Use
  Company Number: US-UNITED THERAPEUTICS-UNT-2022-018094

PATIENT
  Age: 6 Month
  Sex: Male

DRUGS (8)
  1. REMODULIN [Suspect]
     Active Substance: TREPROSTINIL
     Indication: Pulmonary hypertension
     Dosage: UNK, CONTINUING
     Route: 041
  2. NITRIC OXIDE [Suspect]
     Active Substance: NITRIC OXIDE
     Indication: Pulmonary hypertension
     Dosage: UNK
  3. SILDENAFIL [Concomitant]
     Active Substance: SILDENAFIL
     Indication: Pulmonary hypertension
     Dosage: UNK
     Route: 065
  4. BOSENTAN [Concomitant]
     Active Substance: BOSENTAN
     Indication: Pulmonary hypertension
     Dosage: UNK
     Route: 065
  5. EPOPROSTENOL [Concomitant]
     Active Substance: EPOPROSTENOL
     Indication: Pulmonary hypertension
     Dosage: UNK
     Route: 065
  6. RIOCIGUAT [Concomitant]
     Active Substance: RIOCIGUAT
     Indication: Pulmonary hypertension
     Dosage: 0.05 MG
     Route: 065
  7. RIOCIGUAT [Concomitant]
     Active Substance: RIOCIGUAT
     Dosage: 1 MG
     Route: 065
  8. OXYGEN [Concomitant]
     Active Substance: OXYGEN
     Indication: Pulmonary hypertension
     Dosage: UNK
     Route: 065

REACTIONS (3)
  - Right-to-left cardiac shunt [Recovered/Resolved]
  - Tachypnoea [Recovered/Resolved]
  - Drug hypersensitivity [Unknown]
